FAERS Safety Report 19043246 (Version 1)
Quarter: 2021Q1

REPORT INFORMATION
  Report Type: Spontaneous
  Country: US (occurrence: US)
  Receive Date: 20210322
  Receipt Date: 20210322
  Transmission Date: 20210420
  Serious: Yes (Hospitalization)
  Sender: FDA-Public Use
  Company Number: None

PATIENT
  Age: 80 Year
  Sex: Male
  Weight: 92.8 kg

DRUGS (11)
  1. RANOLAZINE. [Concomitant]
     Active Substance: RANOLAZINE
  2. BISACODYL. [Concomitant]
     Active Substance: BISACODYL
  3. FUROSEMIDE. [Concomitant]
     Active Substance: FUROSEMIDE
  4. MELATONIN [Concomitant]
     Active Substance: MELATONIN
  5. METOPROLOL. [Concomitant]
     Active Substance: METOPROLOL
  6. ROSUVASTATIN. [Concomitant]
     Active Substance: ROSUVASTATIN
  7. SPIRONOLACTONE. [Concomitant]
     Active Substance: SPIRONOLACTONE
  8. LISINOPRIL. [Concomitant]
     Active Substance: LISINOPRIL
  9. RIVAROXABAN [Concomitant]
     Active Substance: RIVAROXABAN
  10. IOPAMIDOL [Suspect]
     Active Substance: IOPAMIDOL
     Indication: SCAN WITH CONTRAST
     Dosage: ?          OTHER FREQUENCY:ONCE;?
     Route: 042
  11. ASPIRIN. [Concomitant]
     Active Substance: ASPIRIN

REACTIONS (3)
  - Hypoxia [None]
  - Hypotension [None]
  - Unresponsive to stimuli [None]
